FAERS Safety Report 19151068 (Version 3)
Quarter: 2021Q2

REPORT INFORMATION
  Report Type: Spontaneous
  Country: US (occurrence: US)
  Receive Date: 20210419
  Receipt Date: 20210525
  Transmission Date: 20210717
  Serious: No
  Sender: FDA-Public Use
  Company Number: US-TEVA-2021-US-1898998

PATIENT
  Age: 72 Year
  Sex: Female

DRUGS (6)
  1. ZOLPIDEM TARTRATE TEVA [Suspect]
     Active Substance: ZOLPIDEM TARTRATE
     Indication: INSOMNIA
     Dosage: 5 MG
     Route: 065
     Dates: start: 2001
  2. ZOLPIDEM [Suspect]
     Active Substance: ZOLPIDEM TARTRATE
     Indication: INSOMNIA
     Route: 065
  3. KLONOPIN [Concomitant]
     Active Substance: CLONAZEPAM
     Dosage: TWICE A DAY
     Route: 065
  4. CLONAZEPAM TEVA [Suspect]
     Active Substance: CLONAZEPAM
     Route: 065
  5. LITHIUM. [Concomitant]
     Active Substance: LITHIUM
     Route: 065
  6. ZOLPIDEM TARTRATE TEVA [Suspect]
     Active Substance: ZOLPIDEM TARTRATE
     Dosage: 10 MILLIGRAM DAILY;
     Route: 065

REACTIONS (13)
  - Somnolence [Unknown]
  - Nausea [Recovered/Resolved]
  - Balance disorder [Not Recovered/Not Resolved]
  - Agitation [Unknown]
  - Abnormal behaviour [Unknown]
  - Thermal burn [Unknown]
  - Stress [Not Recovered/Not Resolved]
  - Impaired work ability [Not Recovered/Not Resolved]
  - Therapeutic product effect decreased [Unknown]
  - Wrong technique in product usage process [Unknown]
  - Product availability issue [Unknown]
  - Product quality issue [Unknown]
  - Product dose omission issue [Unknown]
